FAERS Safety Report 16618808 (Version 9)
Quarter: 2022Q2

REPORT INFORMATION
  Report Type: Report from Study
  Country: JP (occurrence: JP)
  Receive Date: 20190723
  Receipt Date: 20220624
  Transmission Date: 20220721
  Serious: Yes (Hospitalization)
  Sender: FDA-Public Use
  Company Number: JP-ABBVIE-18S-087-2549565-00

PATIENT
  Age: 72 Year
  Sex: Female
  Weight: 48 kg

DRUGS (8)
  1. CARBIDOPA\LEVODOPA [Suspect]
     Active Substance: CARBIDOPA\LEVODOPA
     Indication: Parkinson^s disease
     Dosage: MD: 13 ML CD: 3.5 ML / HR X 16 HRS ED: 3.2 ML / UNIT X 3
     Route: 050
     Dates: start: 20180313, end: 20190304
  2. CARBIDOPA\LEVODOPA [Suspect]
     Active Substance: CARBIDOPA\LEVODOPA
     Dosage: MD: 13 ML CD: 4.0 ML/HR X 16 HRS ED: 2.5 ML/UNIT X 3 TIMES
     Route: 050
     Dates: start: 20190304
  3. CARBIDOPA HYDRATE-LEVODOPA MIXT [Concomitant]
     Indication: Product used for unknown indication
     Route: 048
  4. ROTIGOTINE [Concomitant]
     Active Substance: ROTIGOTINE
     Indication: Product used for unknown indication
     Route: 062
  5. CARBIDOPA, LEVODOPA AND ENTACAPONE [Concomitant]
     Active Substance: CARBIDOPA\ENTACAPONE\LEVODOPA
     Indication: Parkinson^s disease
     Route: 048
  6. CALCITRIOL [Concomitant]
     Active Substance: CALCITRIOL
     Indication: Hypocalcaemia
     Route: 048
  7. CALCIUM L-ASPARTATE [Concomitant]
     Indication: Hypocalcaemia
     Route: 048
  8. CARBIDOPA\LEVODOPA [Concomitant]
     Active Substance: CARBIDOPA\LEVODOPA
     Indication: Parkinson^s disease
     Route: 048
     Dates: start: 20190401

REACTIONS (8)
  - Calcium deficiency [Unknown]
  - Musculoskeletal stiffness [Unknown]
  - Incorrect route of product administration [Unknown]
  - Therapeutic response shortened [Unknown]
  - Incorrect dose administered [Unknown]
  - Mobility decreased [Unknown]
  - Stoma site discharge [Recovered/Resolved]
  - Stoma site extravasation [Unknown]

NARRATIVE: CASE EVENT DATE: 20190601
